FAERS Safety Report 4911902-1 (Version None)
Quarter: 2006Q1

REPORT INFORMATION
  Report Type: 
  Country: None (occurrence: None)
  Receive Date: 20060213
  Receipt Date: 20060213
  Transmission Date: 20060701
  Serious: Yes (Hospitalization)
  Sender: FDA-Public Use
  Company Number: None

PATIENT
  Age: 71 Year
  Sex: Female
  Weight: 50 kg

DRUGS (2)
  1. FERRLECIT [Suspect]
     Indication: ANAEMIA
     Dosage: 250 MG WEEKLY X 4  IV
     Route: 042
     Dates: start: 20051201
  2. FERRLECIT [Suspect]
     Indication: IRON DEFICIENCY
     Dosage: 250 MG WEEKLY X 4  IV
     Route: 042
     Dates: start: 20051201

REACTIONS (3)
  - GRAND MAL CONVULSION [None]
  - INFUSION RELATED REACTION [None]
  - URINARY INCONTINENCE [None]
